FAERS Safety Report 8814871 (Version 2)
Quarter: 2012Q4

REPORT INFORMATION
  Report Type: 
  Country: US (occurrence: US)
  Receive Date: 20120928
  Receipt Date: 20121026
  Transmission Date: 20130627
  Serious: No
  Sender: FDA-Public Use
  Company Number: US-ASTRAZENECA-2012SE72261

PATIENT
  Age: 84 Year
  Sex: Female

DRUGS (9)
  1. SYMBICORT [Suspect]
     Indication: CHRONIC OBSTRUCTIVE PULMONARY DISEASE
     Dosage: 320 MCG TWO TIMES A DAY
     Route: 055
     Dates: start: 201203
  2. SYMBICORT [Suspect]
     Indication: CHRONIC OBSTRUCTIVE PULMONARY DISEASE
     Dosage: 80/ 4.5 MCG, 2 PUFFS TWO TIMES A DAY
     Route: 055
     Dates: start: 20120902
  3. ALBUTEROL [Concomitant]
     Indication: CHRONIC OBSTRUCTIVE PULMONARY DISEASE
     Dosage: 1 VIAL TWO TIMES A DAY
     Route: 055
  4. DILTIAZEM [Concomitant]
     Indication: HYPERTENSION
     Route: 048
  5. LOSARTAN [Concomitant]
     Route: 048
  6. ASA [Concomitant]
     Route: 048
  7. MAGNESIUM [Concomitant]
     Route: 048
  8. ATORVASTATIN [Concomitant]
     Route: 048
  9. FUROSEMIDE [Concomitant]
     Route: 048

REACTIONS (4)
  - Dyspnoea [Not Recovered/Not Resolved]
  - Discomfort [Unknown]
  - Dysphonia [Not Recovered/Not Resolved]
  - Drug dose omission [Unknown]
